FAERS Safety Report 5737766-4 (Version None)
Quarter: 2008Q2

REPORT INFORMATION
  Report Type: 
  Country: None (occurrence: None)
  Receive Date: 20080514
  Receipt Date: 20080508
  Transmission Date: 20081010
  Serious: Yes (Death)
  Sender: FDA-Public Use
  Company Number: JP-AVENTIS-200811059JP

PATIENT
  Age: 62 Year
  Sex: Male
  Weight: 56 kg

DRUGS (66)
  1. TAXOTERE [Suspect]
     Route: 041
     Dates: start: 20070514, end: 20070717
  2. TAXOTERE [Suspect]
     Route: 041
     Dates: start: 20070806, end: 20070806
  3. TAXOTERE [Suspect]
     Route: 041
     Dates: start: 20070827, end: 20070827
  4. TS-1 [Concomitant]
     Route: 048
     Dates: start: 20070514, end: 20070527
  5. TS-1 [Concomitant]
     Route: 048
     Dates: start: 20070604, end: 20070617
  6. TS-1 [Concomitant]
     Route: 048
     Dates: start: 20070625, end: 20070708
  7. TS-1 [Concomitant]
     Route: 048
     Dates: start: 20070717, end: 20070724
  8. TS-1 [Concomitant]
     Route: 048
     Dates: start: 20070725, end: 20070725
  9. DECADRON [Concomitant]
     Indication: PREMEDICATION
     Route: 051
     Dates: start: 20070514, end: 20070514
  10. DECADRON [Concomitant]
     Route: 051
     Dates: start: 20070604, end: 20070604
  11. DECADRON [Concomitant]
     Route: 051
     Dates: start: 20070625, end: 20070625
  12. DECADRON [Concomitant]
     Route: 051
     Dates: start: 20070717, end: 20070717
  13. DECADRON [Concomitant]
     Route: 051
     Dates: start: 20070806, end: 20070806
  14. DECADRON [Concomitant]
     Route: 051
     Dates: start: 20070827, end: 20070827
  15. VOLTAREN [Concomitant]
     Route: 048
     Dates: end: 20070617
  16. VOLTAREN [Concomitant]
     Route: 048
     Dates: start: 20070619, end: 20070709
  17. VOLTAREN [Concomitant]
     Route: 048
     Dates: start: 20070717, end: 20070819
  18. VOLTAREN [Concomitant]
     Route: 048
     Dates: start: 20070827, end: 20070924
  19. NORVASC [Concomitant]
     Route: 048
     Dates: end: 20070617
  20. NORVASC [Concomitant]
     Route: 048
     Dates: start: 20070619, end: 20070924
  21. BASEN [Concomitant]
     Route: 048
     Dates: end: 20070617
  22. BASEN [Concomitant]
     Route: 048
     Dates: start: 20070619, end: 20070920
  23. OMEPRAZOLE [Concomitant]
     Route: 048
     Dates: start: 20070521, end: 20070617
  24. OMEPRAZOLE [Concomitant]
     Route: 048
     Dates: start: 20070619, end: 20070924
  25. MAGNESIUM OXIDE [Concomitant]
     Route: 048
     Dates: start: 20070521, end: 20070617
  26. MAGNESIUM OXIDE [Concomitant]
     Route: 048
     Dates: start: 20070827, end: 20070918
  27. OPSO [Concomitant]
     Route: 048
     Dates: start: 20070521
  28. PURSENNID                          /00571901/ [Concomitant]
     Dates: start: 20070514
  29. AZULENESULFONATE [Concomitant]
     Dates: start: 20070521
  30. KENALOG [Concomitant]
     Dates: start: 20070521
  31. ISOTONIC SODIUM CHLORIDE SOLUTION [Concomitant]
     Route: 051
     Dates: start: 20070514, end: 20070514
  32. ISOTONIC SODIUM CHLORIDE SOLUTION [Concomitant]
     Route: 051
     Dates: start: 20070604, end: 20070604
  33. ISOTONIC SODIUM CHLORIDE SOLUTION [Concomitant]
     Route: 051
     Dates: start: 20070625, end: 20070625
  34. ISOTONIC SODIUM CHLORIDE SOLUTION [Concomitant]
     Route: 051
     Dates: start: 20070717, end: 20070717
  35. ISOTONIC SODIUM CHLORIDE SOLUTION [Concomitant]
     Route: 051
     Dates: start: 20070806, end: 20070806
  36. ISOTONIC SODIUM CHLORIDE SOLUTION [Concomitant]
     Route: 051
     Dates: start: 20070827, end: 20070827
  37. ISOTONIC SODIUM CHLORIDE SOLUTION [Concomitant]
     Route: 051
     Dates: start: 20070911, end: 20070924
  38. ISOTONIC SODIUM CHLORIDE SOLUTION [Concomitant]
     Route: 051
     Dates: start: 20070920, end: 20070921
  39. ISOTONIC SODIUM CHLORIDE SOLUTION [Concomitant]
     Route: 051
     Dates: start: 20070920, end: 20070924
  40. ISOTONIC SODIUM CHLORIDE SOLUTION [Concomitant]
     Route: 051
     Dates: start: 20070924, end: 20070924
  41. GLUCOSE [Concomitant]
     Route: 051
     Dates: start: 20070514, end: 20070514
  42. GLUCOSE [Concomitant]
     Route: 051
     Dates: start: 20070604, end: 20070604
  43. GLUCOSE [Concomitant]
     Route: 051
     Dates: start: 20070625, end: 20070625
  44. GLUCOSE [Concomitant]
     Route: 051
     Dates: start: 20070717, end: 20070717
  45. GLUCOSE [Concomitant]
     Route: 051
     Dates: start: 20070806, end: 20070806
  46. GLUCOSE [Concomitant]
     Route: 051
     Dates: start: 20070827, end: 20070827
  47. GLUCOSE [Concomitant]
     Route: 051
     Dates: start: 20070920, end: 20070921
  48. GLUCOSE [Concomitant]
     Route: 051
     Dates: start: 20070922, end: 20070924
  49. GLUCOSE [Concomitant]
     Route: 051
     Dates: start: 20070922, end: 20070924
  50. GASMOTIN [Concomitant]
     Route: 048
     Dates: start: 20070604, end: 20070610
  51. NAUZELIN [Concomitant]
     Route: 048
     Dates: start: 20070604, end: 20070617
  52. NAUZELIN [Concomitant]
     Route: 048
     Dates: start: 20070625, end: 20070708
  53. NAUZELIN [Concomitant]
     Route: 048
     Dates: start: 20070717, end: 20070720
  54. PROMAC                             /01312301/ [Concomitant]
     Route: 048
     Dates: start: 20070611, end: 20070617
  55. PROMAC                             /01312301/ [Concomitant]
     Route: 048
     Dates: start: 20070619, end: 20070716
  56. DECADRON [Concomitant]
     Route: 048
     Dates: start: 20070806, end: 20070808
  57. DECADRON [Concomitant]
     Route: 048
     Dates: start: 20070828, end: 20070830
  58. POSTERISAN FORTE [Concomitant]
     Dates: start: 20070806, end: 20070924
  59. LEVOFLOXACIN [Concomitant]
     Route: 048
     Dates: start: 20070814, end: 20070818
  60. LEVOFLOXACIN [Concomitant]
     Route: 048
     Dates: start: 20070904, end: 20070908
  61. TRANSAMIN [Concomitant]
     Dates: start: 20070816
  62. SODIUM BICARBONATE [Concomitant]
     Dates: start: 20070816, end: 20070816
  63. PURIFIED WATER [Concomitant]
     Dates: start: 20070816, end: 20070816
  64. NEU-UP [Concomitant]
     Route: 051
     Dates: start: 20070814, end: 20070816
  65. NEU-UP [Concomitant]
     Route: 051
     Dates: start: 20070904, end: 20070905
  66. KENALOG [Concomitant]
     Dates: start: 20070827

REACTIONS (1)
  - INTERSTITIAL LUNG DISEASE [None]
